FAERS Safety Report 7265406-4 (Version None)
Quarter: 2011Q1

REPORT INFORMATION
  Report Type: 
  Country: None (occurrence: None)
  Receive Date: 20110131
  Receipt Date: 20110125
  Transmission Date: 20110831
  Serious: Yes (Hospitalization, Other)
  Sender: FDA-Public Use
  Company Number: JP-B.I. PHARMACEUTICALS,INC./RIDGEFIELD-2010-BP-13898NB

PATIENT
  Sex: Female

DRUGS (10)
  1. MICARDIS [Suspect]
     Indication: HYPERTENSION
     Dosage: 40 MG
     Route: 048
     Dates: end: 20101201
  2. URINORM [Concomitant]
     Dosage: 50 MG
     Route: 048
  3. GLIMICRON [Suspect]
     Dosage: 40 MG
     Route: 048
     Dates: end: 20101120
  4. LASIX [Concomitant]
     Dosage: 40 MG
     Route: 048
  5. PANALDINE [Concomitant]
     Dosage: 100 MG
     Route: 048
  6. NITRODERM [Concomitant]
     Dosage: 25 MG
  7. CALSLOT [Concomitant]
     Dosage: 20 MG
     Route: 048
  8. SIGMART [Concomitant]
     Dosage: 5 MG
     Route: 048
  9. CRESTOR [Concomitant]
     Dosage: 5 MG
     Route: 048
  10. ACINON [Concomitant]
     Dosage: 150 MG
     Route: 048

REACTIONS (1)
  - HYPOGLYCAEMIA [None]
